FAERS Safety Report 5598528-4 (Version None)
Quarter: 2008Q1

REPORT INFORMATION
  Report Type: 
  Country: None (occurrence: None)
  Receive Date: 20080122
  Receipt Date: 20080115
  Transmission Date: 20080703
  Serious: Yes (Death, Hospitalization)
  Sender: FDA-Public Use
  Company Number: NL-JNJFOC-20080103730

PATIENT
  Sex: Female

DRUGS (5)
  1. REMICADE [Suspect]
     Indication: CROHN'S DISEASE
     Dosage: 29 TIMES
     Route: 042
  2. ENTOCORT EC [Concomitant]
  3. IMURAN [Concomitant]
     Dosage: FIRST 3 INFUSIONS WERE NOT GIVEN (FROM 13DEC2001 - ^27MAR2001^)
  4. METOPROLOL TARTRATE [Concomitant]
  5. ORGAMETRIL [Concomitant]

REACTIONS (2)
  - ABSCESS [None]
  - CARCINOID TUMOUR [None]
